FAERS Safety Report 7668058-4 (Version None)
Quarter: 2011Q3

REPORT INFORMATION
  Report Type: 
  Country: None (occurrence: None)
  Receive Date: 20110808
  Receipt Date: 20110802
  Transmission Date: 20111222
  Serious: Yes (Other)
  Sender: FDA-Public Use
  Company Number: US-PFIZER INC-2011177476

PATIENT
  Sex: Female

DRUGS (1)
  1. LYRICA [Suspect]
     Indication: PAIN
     Dosage: 600 MG, 1X/DAY
     Dates: start: 20091201, end: 20100701

REACTIONS (2)
  - OEDEMA PERIPHERAL [None]
  - MENTAL IMPAIRMENT [None]
